FAERS Safety Report 17337617 (Version 2)
Quarter: 2020Q1

REPORT INFORMATION
  Report Type: Spontaneous
  Country: US (occurrence: US)
  Receive Date: 20200129
  Receipt Date: 20200207
  Transmission Date: 20200409
  Serious: Yes (Death, Hospitalization)
  Sender: FDA-Public Use
  Company Number: US-TEVA-2020-US-1175319

PATIENT
  Age: 62 Year
  Sex: Female

DRUGS (2)
  1. PREDNISONE. [Suspect]
     Active Substance: PREDNISONE
     Indication: SYSTEMIC LUPUS ERYTHEMATOSUS
     Route: 065
  2. MYCOPHENOLATE MOFETIL. [Suspect]
     Active Substance: MYCOPHENOLATE MOFETIL
     Indication: SYSTEMIC LUPUS ERYTHEMATOSUS
     Route: 065

REACTIONS (8)
  - Acute respiratory distress syndrome [Fatal]
  - Herpes simplex [Fatal]
  - Pneumothorax [Fatal]
  - Pneumonia [Fatal]
  - Varicella zoster virus infection [Fatal]
  - Multiple organ dysfunction syndrome [Fatal]
  - Stenotrophomonas infection [Fatal]
  - Septic shock [Fatal]
